FAERS Safety Report 13103286 (Version 2)
Quarter: 2017Q1

REPORT INFORMATION
  Report Type: Report from Study
  Country: US (occurrence: US)
  Receive Date: 20170110
  Receipt Date: 20170220
  Transmission Date: 20170428
  Serious: Yes (Other)
  Sender: FDA-Public Use
  Company Number: US-ROCHE-1876298

PATIENT
  Sex: Female
  Weight: 79 kg

DRUGS (4)
  1. HYDROXYCHLOROQUINE [Concomitant]
     Active Substance: HYDROXYCHLOROQUINE
  2. SODIUM CHLORIDE. [Concomitant]
     Active Substance: SODIUM CHLORIDE
     Dosage: 1 LITRE
     Route: 065
  3. RITUXAN [Suspect]
     Active Substance: RITUXIMAB
     Indication: RHEUMATOID ARTHRITIS
     Dosage: ONGOING: UNKNOWN?ON DAY 1 AND DAY 15 THEN OFF 5-6 MONTHS
     Route: 042
  4. METHOTREXATE. [Concomitant]
     Active Substance: METHOTREXATE

REACTIONS (5)
  - Memory impairment [Unknown]
  - Mental impairment [Unknown]
  - Petit mal epilepsy [Not Recovered/Not Resolved]
  - Blood pressure increased [Recovered/Resolved]
  - Systemic lupus erythematosus [Not Recovered/Not Resolved]
